FAERS Safety Report 4761186-2 (Version None)
Quarter: 2005Q3

REPORT INFORMATION
  Report Type: 
  Country: None (occurrence: None)
  Receive Date: 20050902
  Receipt Date: 20050902
  Transmission Date: 20060218
  Serious: Yes (Hospitalization)
  Sender: FDA-Public Use
  Company Number: None

PATIENT
  Age: 71 Year
  Sex: Male
  Weight: 47.6277 kg

DRUGS (2)
  1. CYCLOPHOSPHAMIDE  500MG [Suspect]
     Indication: LYMPHOMA
     Dosage: 530 MG DAILY X 3 IV
     Route: 042
     Dates: start: 20050523, end: 20050811
  2. FLUDARABINE    500MG [Suspect]
     Indication: LYMPHOMA
     Dosage: 40 MG DAILY X 3 IV
     Route: 042
     Dates: start: 20050523, end: 20050811

REACTIONS (9)
  - APLASTIC ANAEMIA [None]
  - CHILLS [None]
  - DECREASED APPETITE [None]
  - FEBRILE NEUTROPENIA [None]
  - FLUID INTAKE REDUCED [None]
  - FOLLICLE CENTRE LYMPHOMA, FOLLICULAR GRADE I, II, III RECURRENT [None]
  - HYPERHIDROSIS [None]
  - PRODUCTIVE COUGH [None]
  - SPUTUM DISCOLOURED [None]
